FAERS Safety Report 10168792 (Version 2)
Quarter: 2014Q2

REPORT INFORMATION
  Report Type: Report from Study
  Country: CA (occurrence: CA)
  Receive Date: 20140513
  Receipt Date: 20140513
  Transmission Date: 20141212
  Serious: Yes (Hospitalization)
  Sender: FDA-Public Use
  Company Number: CA-JNJFOC-20140402735

PATIENT
  Age: 47 Year
  Sex: Female
  Weight: 76.4 kg

DRUGS (1)
  1. REMICADE [Suspect]
     Indication: PSORIATIC ARTHROPATHY
     Route: 042
     Dates: start: 20131114

REACTIONS (4)
  - Pneumonia [Not Recovered/Not Resolved]
  - Pneumothorax [Not Recovered/Not Resolved]
  - Influenza [Not Recovered/Not Resolved]
  - Hyperhidrosis [Unknown]
